FAERS Safety Report 13039893 (Version 2)
Quarter: 2017Q1

REPORT INFORMATION
  Report Type: Report from Study
  Country: US (occurrence: US)
  Receive Date: 20161219
  Receipt Date: 20170303
  Transmission Date: 20170428
  Serious: Yes (Death, Hospitalization, Other)
  Sender: FDA-Public Use
  Company Number: US-009507513-1612USA006448

PATIENT
  Age: 78 Year
  Sex: Female
  Weight: 54.42 kg

DRUGS (1)
  1. KEYTRUDA [Suspect]
     Active Substance: PEMBROLIZUMAB
     Indication: LUNG NEOPLASM MALIGNANT
     Dosage: UNK, Q3W
     Route: 042
     Dates: start: 20160719, end: 20160901

REACTIONS (3)
  - Dizziness [Fatal]
  - Confusional state [Fatal]
  - Metastases to central nervous system [Unknown]

NARRATIVE: CASE EVENT DATE: 20160903
